FAERS Safety Report 26082763 (Version 1)
Quarter: 2025Q4

REPORT INFORMATION
  Report Type: Spontaneous
  Country: US (occurrence: None)
  Receive Date: 20251123
  Receipt Date: 20251123
  Transmission Date: 20260117
  Serious: Yes (Hospitalization)
  Sender: FDA-CTU
  Company Number: None

PATIENT
  Sex: Male

DRUGS (1)
  1. MIGLUSTAT [Suspect]
     Active Substance: MIGLUSTAT
     Indication: Niemann-Pick disease
     Dosage: 200 MG 3 TIMES A DAY ORAL
     Route: 048
     Dates: start: 20240604

REACTIONS (2)
  - Spinal fusion surgery [None]
  - Therapy interrupted [None]
